FAERS Safety Report 12249014 (Version 1)
Quarter: 2016Q2

REPORT INFORMATION
  Report Type: Spontaneous
  Country: US (occurrence: None)
  Receive Date: 20160407
  Receipt Date: 20160407
  Transmission Date: 20160815
  Serious: Yes (Hospitalization)
  Sender: FDA-Public Use
  Company Number: None

PATIENT
  Age: 53 Year
  Sex: Male
  Weight: 115 kg

DRUGS (1)
  1. ERBITUX [Suspect]
     Active Substance: CETUXIMAB
     Dates: end: 20160318

REACTIONS (4)
  - Skin discolouration [None]
  - Flushing [None]
  - Cardio-respiratory arrest [None]
  - Pruritus [None]

NARRATIVE: CASE EVENT DATE: 20160318
